FAERS Safety Report 8499528-7 (Version None)
Quarter: 2012Q3

REPORT INFORMATION
  Report Type: 
  Country: None (occurrence: None)
  Receive Date: 20120710
  Receipt Date: 20120702
  Transmission Date: 20120928
  Serious: Yes (Other)
  Sender: FDA-Public Use
  Company Number: US-JNJFOC-20120701083

PATIENT
  Sex: Female

DRUGS (10)
  1. PENTASA [Concomitant]
     Route: 065
  2. HYZAAR [Concomitant]
     Route: 065
  3. VITAMIN D [Concomitant]
     Route: 065
  4. FISH OIL [Concomitant]
     Route: 065
  5. NORVASC [Concomitant]
     Route: 065
  6. ATENOLOL [Concomitant]
     Route: 065
  7. PROBIOTIC [Concomitant]
     Route: 065
  8. REMICADE [Suspect]
     Indication: CROHN'S DISEASE
     Route: 042
  9. REMICADE [Suspect]
     Route: 042
     Dates: start: 20120529
  10. GABAPENTIN [Concomitant]
     Route: 065

REACTIONS (3)
  - BLISTER [None]
  - OEDEMA PERIPHERAL [None]
  - ORAL MUCOSAL BLISTERING [None]
